FAERS Safety Report 7118336-2 (Version None)
Quarter: 2010Q4

REPORT INFORMATION
  Report Type: 
  Country: None (occurrence: None)
  Receive Date: 20101123
  Receipt Date: 20101117
  Transmission Date: 20110411
  Serious: Yes (Life-Threatening, Hospitalization)
  Sender: FDA-Public Use
  Company Number: PHHY2010JP61318

PATIENT
  Sex: Female
  Weight: 52 kg

DRUGS (4)
  1. RASILEZ [Suspect]
     Indication: HYPERTENSION
     Dosage: 150 MG, QD
     Route: 048
     Dates: start: 20100420, end: 20100907
  2. RASILEZ [Suspect]
     Dosage: HALF TABLET DAILY
     Route: 048
     Dates: start: 20100907, end: 20100909
  3. LASIX [Suspect]
     Indication: HYPERTENSION
     Dosage: 20 MG DAILY
     Route: 048
     Dates: start: 20100807, end: 20100909
  4. ATELEC [Concomitant]
     Dosage: 10 MG DAILY
     Route: 048
     Dates: start: 20100907

REACTIONS (9)
  - BLOOD CREATININE INCREASED [None]
  - COUGH [None]
  - DEHYDRATION [None]
  - HYPERKALAEMIA [None]
  - HYPERTENSION [None]
  - INFECTION [None]
  - PNEUMONIA [None]
  - PRODUCTIVE COUGH [None]
  - RENAL IMPAIRMENT [None]
